FAERS Safety Report 20650858 (Version 1)
Quarter: 2022Q1

REPORT INFORMATION
  Report Type: Spontaneous
  Country: TN (occurrence: TN)
  Receive Date: 20220329
  Receipt Date: 20220329
  Transmission Date: 20220423
  Serious: Yes (Hospitalization, Other)
  Sender: FDA-Public Use
  Company Number: TN-AZURITY PHARMACEUTICALS, INC.-TN-2022ARB000819

PATIENT

DRUGS (1)
  1. METHOTREXATE [Suspect]
     Active Substance: METHOTREXATE
     Indication: Rheumatoid arthritis
     Dosage: 25 MILLIGRAM, WEEKLY

REACTIONS (3)
  - Cholestasis [Recovered/Resolved]
  - Aortitis [Recovered/Resolved]
  - Rheumatoid vasculitis [Recovered/Resolved]
